FAERS Safety Report 6209398-5 (Version None)
Quarter: 2009Q2

REPORT INFORMATION
  Report Type: 
  Country: None (occurrence: None)
  Receive Date: 20090529
  Receipt Date: 20090518
  Transmission Date: 20091009
  Serious: Yes (Death)
  Sender: FDA-Public Use
  Company Number: DE-GENENTECH-283564

PATIENT

DRUGS (6)
  1. MABTHERA [Suspect]
     Indication: B-CELL LYMPHOMA
     Dosage: 375 MG/M2, 2/WEEK
     Route: 065
  2. CYCLOPHOSPHAMIDE [Suspect]
     Indication: B-CELL LYMPHOMA
     Dosage: 750 MG/M2, UNK
     Route: 042
  3. DOXORUBICIN HCL [Suspect]
     Indication: B-CELL LYMPHOMA
     Dosage: 50 MG/M2, UNK
     Route: 042
  4. VINCRISTINE [Suspect]
     Indication: B-CELL LYMPHOMA
     Dosage: 2 MG, UNK
     Route: 042
  5. PREDNISONE [Suspect]
     Indication: B-CELL LYMPHOMA
     Dosage: 100 MG, DAYS 1-5
     Route: 048
  6. NEUPOGEN [Suspect]
     Indication: B-CELL LYMPHOMA
     Route: 065

REACTIONS (15)
  - ACUTE MYELOID LEUKAEMIA [None]
  - ANAEMIA [None]
  - ARRHYTHMIA [None]
  - CARDIAC DISORDER [None]
  - CENTRAL NERVOUS SYSTEM LYMPHOMA [None]
  - EMBOLISM [None]
  - INFECTION [None]
  - LEUKOPENIA [None]
  - MUCOSAL INFLAMMATION [None]
  - MYELODYSPLASTIC SYNDROME [None]
  - MYOCARDIAL INFARCTION [None]
  - NEUROPATHY PERIPHERAL [None]
  - PACKED RED BLOOD CELL TRANSFUSION [None]
  - PLATELET TRANSFUSION [None]
  - THROMBOCYTOPENIA [None]
